FAERS Safety Report 6992020-8 (Version None)
Quarter: 2010Q3

REPORT INFORMATION
  Report Type: 
  Country: None (occurrence: None)
  Receive Date: 20100917
  Receipt Date: 20100909
  Transmission Date: 20110219
  Serious: Yes (Hospitalization)
  Sender: FDA-Public Use
  Company Number: GR-PFIZER INC-2010114514

PATIENT
  Age: 73 Year
  Sex: Female

DRUGS (3)
  1. ALPRAZOLAM [Suspect]
     Indication: DEPRESSION
     Dosage: UNK
  2. PAROXETINE [Suspect]
     Indication: DEPRESSION
     Dosage: UNK
  3. CLOMIPRAMINE [Suspect]
     Indication: DEPRESSION
     Dosage: UNK

REACTIONS (1)
  - SEROTONIN SYNDROME [None]
